FAERS Safety Report 6685036-2 (Version None)
Quarter: 2010Q2

REPORT INFORMATION
  Report Type: 
  Country: None (occurrence: None)
  Receive Date: 20100416
  Receipt Date: 20100406
  Transmission Date: 20101027
  Serious: Yes (Hospitalization)
  Sender: FDA-Public Use
  Company Number: A0782659B

PATIENT
  Sex: Female
  Weight: 71 kg

DRUGS (10)
  1. ELTROMBOPAG [Suspect]
     Indication: THROMBOCYTOPENIA
     Route: 048
     Dates: start: 20090319, end: 20100217
  2. ELTROMBOPAG [Suspect]
     Dosage: 25MG PER DAY
     Route: 048
     Dates: start: 20090226, end: 20090318
  3. PEGASYS [Suspect]
     Route: 058
     Dates: start: 20090319, end: 20100213
  4. COPEGUS [Suspect]
     Route: 048
     Dates: start: 20090319, end: 20100217
  5. VITAMIN C [Concomitant]
     Dosage: 1TAB PER DAY
     Route: 048
     Dates: start: 20090319
  6. METHYLCOBAL [Concomitant]
     Dosage: 1TAB PER DAY
     Route: 048
     Dates: start: 20090319
  7. FOLVITE [Concomitant]
     Dosage: 1TAB PER DAY
     Route: 048
     Dates: start: 20090319
  8. CALCIUM + VITAMIN D [Concomitant]
     Dosage: 1TAB PER DAY
     Route: 048
     Dates: start: 20090901
  9. EPOGEN [Concomitant]
     Dosage: 30000IU WEEKLY
     Route: 058
     Dates: start: 20091008, end: 20100203
  10. ELTROXIN [Concomitant]
     Indication: HYPOTHYROIDISM
     Route: 048
     Dates: start: 20100327

REACTIONS (3)
  - OROPHARYNGEAL PAIN [None]
  - PLEUROPERICARDITIS [None]
  - PYREXIA [None]
